FAERS Safety Report 9735422 (Version 4)
Quarter: 2016Q1

REPORT INFORMATION
  Report Type: Spontaneous
  Country: US (occurrence: US)
  Receive Date: 20131206
  Receipt Date: 20160112
  Transmission Date: 20160526
  Serious: Yes (Hospitalization, Disabling, Other)
  Sender: FDA-Public Use
  Company Number: US-009507513-1312USA001900

PATIENT
  Sex: Female

DRUGS (2)
  1. FOSAMAX [Suspect]
     Active Substance: ALENDRONATE SODIUM
     Indication: OSTEOPENIA
     Dosage: UNK UNK, UNKNOWN
     Route: 048
     Dates: start: 200802, end: 2009
  2. FOSAMAX [Suspect]
     Active Substance: ALENDRONATE SODIUM
     Indication: OSTEOPENIA
     Dosage: 70 MG, UNKNOWN
     Route: 048
     Dates: start: 200412, end: 200910

REACTIONS (18)
  - Surgery [Unknown]
  - Osteoporosis [Not Recovered/Not Resolved]
  - Female sterilisation [Unknown]
  - Endometrial ablation [Unknown]
  - Atrial tachycardia [Unknown]
  - Low turnover osteopathy [Not Recovered/Not Resolved]
  - Sleep disorder [Unknown]
  - Internal fixation of fracture [Unknown]
  - Fall [Unknown]
  - Benign neoplasm of adrenal gland [Unknown]
  - Vaginal infection [Unknown]
  - Psoriasis [Unknown]
  - Asthma [Unknown]
  - Femoral neck fracture [Not Recovered/Not Resolved]
  - Fatigue [Unknown]
  - Spinal fracture [Unknown]
  - Abdominal adhesions [Unknown]
  - Abdominal pain [Not Recovered/Not Resolved]

NARRATIVE: CASE EVENT DATE: 2008
